FAERS Safety Report 13517253 (Version 1)
Quarter: 2017Q2

REPORT INFORMATION
  Report Type: Spontaneous
  Country: IN (occurrence: IN)
  Receive Date: 20170505
  Receipt Date: 20170505
  Transmission Date: 20170830
  Serious: Yes (Death, Life-Threatening, Hospitalization, Other)
  Sender: FDA-Public Use
  Company Number: IN-STRIDES ARCOLAB LIMITED-2017SP007343

PATIENT

DRUGS (3)
  1. AZATHIOPRINE. [Suspect]
     Active Substance: AZATHIOPRINE
     Indication: IMMUNOSUPPRESSANT DRUG THERAPY
     Dosage: UNK, UNKNOWN
     Route: 065
     Dates: start: 2011
  2. TACROLIMUS. [Suspect]
     Active Substance: TACROLIMUS
     Indication: IMMUNOSUPPRESSANT DRUG THERAPY
     Dosage: UNK, UNKNOWN
     Route: 065
     Dates: start: 2011
  3. PREDNISOLONE. [Suspect]
     Active Substance: PREDNISOLONE
     Indication: IMMUNOSUPPRESSANT DRUG THERAPY
     Dosage: UNK, UNKNOWN
     Route: 065
     Dates: start: 2011

REACTIONS (19)
  - Generalised tonic-clonic seizure [Unknown]
  - Pyrexia [Unknown]
  - Cellulitis orbital [Unknown]
  - Cerebral infarction [Unknown]
  - Eye pain [Unknown]
  - Periorbital disorder [Unknown]
  - Headache [Unknown]
  - VIth nerve paralysis [Unknown]
  - Subarachnoid haemorrhage [Fatal]
  - Exophthalmos [Unknown]
  - Cavernous sinus thrombosis [Unknown]
  - Sinusitis [Unknown]
  - Mucormycosis [Fatal]
  - Basal ganglia infarction [Unknown]
  - Carotid artery aneurysm [Fatal]
  - Meningitis cryptococcal [Fatal]
  - Blood creatinine increased [Unknown]
  - Nasal necrosis [Unknown]
  - Vision blurred [Unknown]
